FAERS Safety Report 10078628 (Version 1)
Quarter: 2014Q2

REPORT INFORMATION
  Report Type: Spontaneous
  Country: US (occurrence: None)
  Receive Date: 20140411
  Receipt Date: 20140411
  Transmission Date: 20141212
  Serious: Yes (Death, Hospitalization)
  Sender: FDA-Public Use
  Company Number: US-000969

PATIENT
  Sex: Female

DRUGS (1)
  1. GATTEX [Suspect]
     Dosage: 0.35 DAILY
     Route: 058
     Dates: start: 20130809

REACTIONS (5)
  - Arrhythmia [None]
  - Procedural haemorrhage [None]
  - Infection [None]
  - Embolism [None]
  - Procedural complication [None]
